FAERS Safety Report 11223380 (Version 1)
Quarter: 2015Q2

REPORT INFORMATION
  Report Type: Spontaneous
  Country: US (occurrence: US)
  Receive Date: 20150627
  Receipt Date: 20150627
  Transmission Date: 20150821
  Serious: No
  Sender: FDA-Public Use
  Company Number: US-ACCORD-030657

PATIENT
  Age: 55 Year
  Sex: Male

DRUGS (1)
  1. ACCORD ESCITALOPRAM [Suspect]
     Active Substance: ESCITALOPRAM OXALATE
     Indication: PRODUCT USED FOR UNKNOWN INDICATION
     Dosage: STARTED 3 OR 4 DAYS AGO
     Route: 048

REACTIONS (1)
  - Feeling abnormal [Not Recovered/Not Resolved]
